FAERS Safety Report 23551356 (Version 2)
Quarter: 2024Q1

REPORT INFORMATION
  Report Type: Spontaneous
  Country: SK (occurrence: SK)
  Receive Date: 20240222
  Receipt Date: 20240315
  Transmission Date: 20240410
  Serious: Yes (Hospitalization, Other)
  Sender: FDA-Public Use
  Company Number: SK-NOVOPROD-1176666

PATIENT
  Age: 28 Year
  Sex: Female
  Weight: 90 kg

DRUGS (3)
  1. SAXENDA [Suspect]
     Active Substance: LIRAGLUTIDE
     Indication: Product used for unknown indication
     Dosage: 3 MG, QD
     Route: 058
  2. BISOPROLOL FUMARATE [Concomitant]
     Active Substance: BISOPROLOL FUMARATE
     Indication: Blood pressure abnormal
  3. BISOPROLOL FUMARATE [Concomitant]
     Active Substance: BISOPROLOL FUMARATE
     Indication: Pulse abnormal
     Dosage: 5 MG

REACTIONS (4)
  - Cholecystitis [Unknown]
  - Cholelithiasis [Unknown]
  - Cholangitis [Unknown]
  - Cholelithiasis [Unknown]
